FAERS Safety Report 22278131 (Version 1)
Quarter: 2023Q2

REPORT INFORMATION
  Report Type: Spontaneous
  Country: IT (occurrence: IT)
  Receive Date: 20230503
  Receipt Date: 20230503
  Transmission Date: 20230721
  Serious: Yes (Other)
  Sender: FDA-Public Use
  Company Number: IT-ASTELLAS-2022US045270

PATIENT
  Age: 64 Year
  Sex: Female

DRUGS (2)
  1. BENDAMUSTINE [Suspect]
     Active Substance: BENDAMUSTINE
     Indication: Lymphoplasmacytoid lymphoma/immunocytoma
     Dosage: UNK UNK, CYCLIC
     Route: 042
  2. RITUXIMAB [Concomitant]
     Active Substance: RITUXIMAB
     Indication: Lymphoplasmacytoid lymphoma/immunocytoma
     Dosage: UNK UNK, UNKNOWN FREQ.

REACTIONS (4)
  - Drug eruption [Recovered/Resolved]
  - Blood disorder [Unknown]
  - Off label use [Unknown]
  - Product use issue [Unknown]
